FAERS Safety Report 11262502 (Version 1)
Quarter: 2015Q3

REPORT INFORMATION
  Report Type: Spontaneous
  Country: GB (occurrence: GB)
  Receive Date: 20150710
  Receipt Date: 20150710
  Transmission Date: 20151125
  Serious: Yes (Other)
  Sender: FDA-Public Use
  Company Number: GB-ELI_LILLY_AND_COMPANY-GB201506010239

PATIENT
  Age: 14 Year
  Sex: Male
  Weight: 60 kg

DRUGS (2)
  1. ATOMOXETINE HYDROCHLORIDE. [Suspect]
     Active Substance: ATOMOXETINE HYDROCHLORIDE
     Indication: IMPULSIVE BEHAVIOUR
     Dosage: 60 MG, QD
     Route: 048
     Dates: start: 20150429
  2. ATOMOXETINE HYDROCHLORIDE. [Suspect]
     Active Substance: ATOMOXETINE HYDROCHLORIDE
     Dosage: 80 MG, QD
     Route: 048
     Dates: end: 20150515

REACTIONS (7)
  - Abasia [Unknown]
  - Confusional state [Recovered/Resolved]
  - Disorientation [Recovered/Resolved]
  - Sensory disturbance [Recovered/Resolved]
  - Somnolence [Recovered/Resolved]
  - Anxiety [Recovered/Resolved]
  - Off label use [Unknown]

NARRATIVE: CASE EVENT DATE: 20150501
